FAERS Safety Report 8575255-2 (Version None)
Quarter: 2012Q3

REPORT INFORMATION
  Report Type: 
  Country: None (occurrence: None)
  Receive Date: 20120807
  Receipt Date: 20120706
  Transmission Date: 20120928
  Serious: No
  Sender: FDA-Public Use
  Company Number: US-009507513-1207USA002074

PATIENT

DRUGS (3)
  1. KLONOPIN [Concomitant]
  2. SAPHRIS [Suspect]
     Indication: SCHIZOPHRENIA
     Dosage: 5MG IN MORNING, 10MG AT NIGHT
  3. RISPERDAL [Concomitant]

REACTIONS (1)
  - RESTLESS LEGS SYNDROME [None]
